FAERS Safety Report 11106966 (Version 1)
Quarter: 2015Q2

REPORT INFORMATION
  Report Type: Spontaneous
  Country: US (occurrence: None)
  Receive Date: 20150511
  Receipt Date: 20150511
  Transmission Date: 20150821
  Serious: Yes (Disabling)
  Sender: FDA-Public Use
  Company Number: None

PATIENT
  Age: 80 Year
  Sex: Male
  Weight: 54.43 kg

DRUGS (15)
  1. LAXATIVE [Suspect]
     Active Substance: UNSPECIFIED INGREDIENT
  2. ASPIRIN. [Concomitant]
     Active Substance: ASPIRIN
  3. FISH OIL [Suspect]
     Active Substance: FISH OIL
  4. VITAMIN D [Suspect]
     Active Substance: CHOLECALCIFEROL
  5. LOSARTAN [Concomitant]
     Active Substance: LOSARTAN
  6. SYMBICORT [Concomitant]
     Active Substance: BUDESONIDE\FORMOTEROL FUMARATE DIHYDRATE
  7. CALCIUM [Suspect]
     Active Substance: CALCIUM
  8. RECLAST [Suspect]
     Active Substance: ZOLEDRONIC ACID
     Indication: OSTEOPOROSIS
     Dosage: 1 TIME A YEAR, INTO A VEIN
     Dates: start: 20150108
  9. PRAVASTATIN [Concomitant]
     Active Substance: PRAVASTATIN\PRAVASTATIN SODIUM
  10. CARVEDILOL. [Concomitant]
     Active Substance: CARVEDILOL
  11. OMEPRAZOLE. [Concomitant]
     Active Substance: OMEPRAZOLE
  12. TODORZA [Concomitant]
  13. VENTOLIN RESCUE INHALER [Concomitant]
  14. VITAMIN C [Suspect]
     Active Substance: ASCORBIC ACID
  15. COQ 10 [Suspect]
     Active Substance: UBIDECARENONE

REACTIONS (6)
  - Pain [None]
  - Gastrointestinal disorder [None]
  - Hypoacusis [None]
  - Sleep disorder [None]
  - Dysphonia [None]
  - Back pain [None]

NARRATIVE: CASE EVENT DATE: 20150108
